FAERS Safety Report 14261420 (Version 3)
Quarter: 2018Q2

REPORT INFORMATION
  Report Type: Other
  Country: ES (occurrence: ES)
  Receive Date: 20171208
  Receipt Date: 20180612
  Transmission Date: 20180711
  Serious: Yes (Death, Other)
  Sender: FDA-Public Use
  Company Number: ES-MACLEODS PHARMACEUTICALS US LTD-MAC2017006466

PATIENT

DRUGS (6)
  1. ILOPROST. [Suspect]
     Active Substance: ILOPROST
     Indication: PULMONARY ARTERIAL HYPERTENSION
     Dosage: UNK
     Route: 042
     Dates: start: 200602
  2. TREPROSTINIL [Suspect]
     Active Substance: TREPROSTINIL
     Indication: PULMONARY ARTERIAL HYPERTENSION
     Dosage: 6 NG/KG/MIN
     Route: 065
  3. SILDENAFIL. [Suspect]
     Active Substance: SILDENAFIL
     Indication: PULMONARY ARTERIAL HYPERTENSION
     Dosage: UPTO 300 MG PER DAY
     Route: 065
  4. ILOPROST. [Suspect]
     Active Substance: ILOPROST
     Dosage: UNK
     Route: 042
  5. IMATINIB [Suspect]
     Active Substance: IMATINIB
     Indication: PULMONARY ARTERIAL HYPERTENSION
     Dosage: 200 MG PER DAY
     Route: 065
  6. BOSENTAN. [Suspect]
     Active Substance: BOSENTAN
     Indication: PULMONARY ARTERIAL HYPERTENSION
     Dosage: 250 MG PER DAY
     Route: 065

REACTIONS (2)
  - Right ventricular failure [Fatal]
  - Drug ineffective [Fatal]

NARRATIVE: CASE EVENT DATE: 200611
